FAERS Safety Report 22193282 (Version 1)
Quarter: 2023Q2

REPORT INFORMATION
  Report Type: Report from Study
  Country: CA (occurrence: CA)
  Receive Date: 20230410
  Receipt Date: 20230410
  Transmission Date: 20230721
  Serious: Yes (Hospitalization)
  Sender: FDA-Public Use
  Company Number: CA-MYLANLABS-2022M1140059

PATIENT
  Sex: Male

DRUGS (3)
  1. HULIO [Suspect]
     Active Substance: ADALIMUMAB-FKJP
     Indication: Psoriasis
     Dosage: UNK (BIWEEKLY)
     Route: 058
     Dates: start: 20220412
  2. HULIO [Suspect]
     Active Substance: ADALIMUMAB-FKJP
     Dosage: 40 MILLIGRAM, BIWEEKLY
     Route: 058
     Dates: start: 20220813, end: 20221226
  3. CEMIPLIMAB [Concomitant]
     Active Substance: CEMIPLIMAB
     Indication: Skin cancer
     Dosage: UNK (23 FEB)
     Route: 065

REACTIONS (2)
  - Ill-defined disorder [Unknown]
  - Product dose omission issue [Unknown]
